FAERS Safety Report 5262973-7 (Version None)
Quarter: 2007Q1

REPORT INFORMATION
  Report Type: 
  Country: None (occurrence: None)
  Receive Date: 20070308
  Receipt Date: 20070221
  Transmission Date: 20070707
  Serious: Yes (Death)
  Sender: FDA-Public Use
  Company Number: 153218ISR

PATIENT
  Age: 15 Year
  Sex: Male

DRUGS (10)
  1. METHOTREXATE [Suspect]
  2. VINCRISTINE [Suspect]
  3. DOXORUBICIN HCL [Concomitant]
  4. CORTISONE ACETATE [Suspect]
  5. DAUNORUBICIN HCL [Suspect]
  6. ASPARAGINASE [Suspect]
  7. CYCLOPHOSPHAMIDE [Suspect]
  8. MERCAPTOPURINE [Concomitant]
  9. CYTARABINE [Suspect]
  10. TIOGUANINE [Suspect]

REACTIONS (2)
  - GLIOMA [None]
  - TREATMENT RELATED SECONDARY MALIGNANCY [None]
